FAERS Safety Report 7533235-X (Version None)
Quarter: 2011Q2

REPORT INFORMATION
  Report Type: 
  Country: None (occurrence: None)
  Receive Date: 20110608
  Receipt Date: 20030916
  Transmission Date: 20111010
  Serious: Yes (Disabling)
  Sender: FDA-Public Use
  Company Number: PHHO2003JP12051

PATIENT
  Sex: Male

DRUGS (3)
  1. ALLOPURINOL [Concomitant]
     Indication: HYPERURICAEMIA
     Dosage: 200 MG, UNK
     Dates: start: 20020308, end: 20030615
  2. NATEGLINIDE [Suspect]
     Indication: TYPE 2 DIABETES MELLITUS
     Dosage: 270 MG,
     Route: 048
     Dates: start: 20020124
  3. PENFILL R [Concomitant]
     Indication: TYPE 2 DIABETES MELLITUS

REACTIONS (3)
  - RENAL IMPAIRMENT [None]
  - BLOOD UREA INCREASED [None]
  - PROTEIN URINE PRESENT [None]
